FAERS Safety Report 14125467 (Version 1)
Quarter: 2017Q4

REPORT INFORMATION
  Report Type: Report from Study
  Country: US (occurrence: US)
  Receive Date: 20171025
  Receipt Date: 20171025
  Transmission Date: 20180321
  Serious: Yes (Hospitalization)
  Sender: FDA-Public Use
  Company Number: US-ASTRAZENECA-2017SF06913

PATIENT
  Age: 65 Year
  Sex: Female
  Weight: 85.3 kg

DRUGS (3)
  1. PRO AIR RESCUE INHALER [Concomitant]
     Indication: DYSPNOEA
     Dosage: AS REQUIRED
     Route: 048
  2. ADVAIR HFA [Concomitant]
     Active Substance: FLUTICASONE PROPIONATE\SALMETEROL XINAFOATE
     Indication: DYSPNOEA
     Dosage: UNKNOWN
     Route: 065
  3. SYMBICORT [Suspect]
     Active Substance: BUDESONIDE\FORMOTEROL FUMARATE DIHYDRATE
     Indication: DYSPNOEA
     Dosage: 160/4.5 2 PUFFS TWICE DAILY
     Route: 055

REACTIONS (10)
  - Fall [Unknown]
  - Off label use [Unknown]
  - Product use in unapproved indication [Unknown]
  - Wrist fracture [Unknown]
  - Skin discolouration [Unknown]
  - Pneumonia [Unknown]
  - Atrial fibrillation [Unknown]
  - Sensory loss [Unknown]
  - Haematoma [Unknown]
  - Dyspnoea [Unknown]

NARRATIVE: CASE EVENT DATE: 2013
